FAERS Safety Report 10640916 (Version 1)
Quarter: 2014Q4

REPORT INFORMATION
  Report Type: Spontaneous
  Country: US (occurrence: None)
  Receive Date: 20141208
  Receipt Date: 20141208
  Transmission Date: 20150529
  Serious: Yes (Other)
  Sender: FDA-Public Use
  Company Number: None

PATIENT
  Age: 40 Year
  Sex: Female
  Weight: 89.81 kg

DRUGS (1)
  1. MECLIZINE [Suspect]
     Active Substance: MECLIZINE\MECLIZINE HYDROCHLORIDE
     Indication: VERTIGO
     Route: 048
     Dates: start: 20141203, end: 20141203

REACTIONS (8)
  - Euphoric mood [None]
  - Dyspnoea [None]
  - Throat tightness [None]
  - Haemorrhage [None]
  - Dysgeusia [None]
  - Somnolence [None]
  - Wheezing [None]
  - Productive cough [None]

NARRATIVE: CASE EVENT DATE: 20141203
